FAERS Safety Report 7635147-X (Version None)
Quarter: 2011Q3

REPORT INFORMATION
  Report Type: 
  Country: None (occurrence: None)
  Receive Date: 20110726
  Receipt Date: 20110711
  Transmission Date: 20111222
  Serious: Yes (Other)
  Sender: FDA-Public Use
  Company Number: US-BAYER-2011-021704

PATIENT
  Age: 30 Year
  Sex: Female
  Weight: 49.887 kg

DRUGS (2)
  1. YAZ [Suspect]
     Indication: PREMENSTRUAL SYNDROME
  2. YAZ [Suspect]
     Indication: ACNE
     Dosage: UNK
     Dates: start: 20081201

REACTIONS (7)
  - WEIGHT INCREASED [None]
  - PAIN [None]
  - CHOLELITHIASIS [None]
  - FEAR [None]
  - GALLBLADDER DISORDER [None]
  - EATING DISORDER [None]
  - CHOLECYSTITIS [None]
